FAERS Safety Report 4849517-6 (Version None)
Quarter: 2005Q4

REPORT INFORMATION
  Report Type: 
  Country: None (occurrence: None)
  Receive Date: 20051209
  Receipt Date: 20051201
  Transmission Date: 20060501
  Serious: Yes (Other)
  Sender: FDA-Public Use
  Company Number: JP-ABBOTT-05P-087-0318529-00

PATIENT
  Age: 86 Year
  Sex: Female

DRUGS (5)
  1. SEVOFLURANE [Suspect]
     Indication: ANAESTHESIA
     Route: 055
  2. LIDOCAINE 2% [Suspect]
     Indication: ANAESTHESIA
     Dosage: 4 TO 6 ML/HOUR CONTINUOUS INFUSION
     Route: 008
  3. LIDOCAINE 2% [Suspect]
     Dosage: 7 ML BOLUS
     Route: 008
  4. NITROUS OXIDE W/ OXYGEN [Concomitant]
     Indication: ANAESTHESIA
     Route: 055
  5. OXYGEN [Concomitant]
     Indication: ANAESTHESIA
     Route: 055

REACTIONS (1)
  - DELAYED RECOVERY FROM ANAESTHESIA [None]
